FAERS Safety Report 8106370-5 (Version None)
Quarter: 2012Q1

REPORT INFORMATION
  Report Type: 
  Country: None (occurrence: None)
  Receive Date: 20120130
  Receipt Date: 20120123
  Transmission Date: 20120608
  Serious: Yes (Hospitalization, Other)
  Sender: FDA-Public Use
  Company Number: NSR_00479_2012

PATIENT
  Age: 27 Year
  Sex: Male

DRUGS (1)
  1. VENLAFAXINE [Suspect]
     Indication: PRODUCT USED FOR UNKNOWN INDICATION
     Dosage: (6.3 G[3 BLISTERS TOTALING 42 EXTENDED RELEASE CAPSULES OF 150 MG])

REACTIONS (9)
  - PYREXIA [None]
  - SUICIDAL IDEATION [None]
  - INCORRECT DOSE ADMINISTERED [None]
  - AGITATION [None]
  - CONVULSION [None]
  - EOSINOPHILIC PNEUMONIA ACUTE [None]
  - EOSINOPHILIA [None]
  - RESPIRATORY FAILURE [None]
  - SHOCK [None]
